FAERS Safety Report 20850750 (Version 1)
Quarter: 2022Q2

REPORT INFORMATION
  Report Type: Spontaneous
  Country: US (occurrence: US)
  Receive Date: 20220519
  Receipt Date: 20220519
  Transmission Date: 20220721
  Serious: No
  Sender: FDA-Public Use
  Company Number: US-PFIZER INC-202200164285

PATIENT
  Age: 72 Year
  Sex: Female

DRUGS (1)
  1. CODEINE PHOSPHATE\PSEUDOEPHEDRINE HYDROCHLORIDE [Suspect]
     Active Substance: CODEINE PHOSPHATE\PSEUDOEPHEDRINE HYDROCHLORIDE
     Dosage: UNK

REACTIONS (2)
  - Skin disorder [Unknown]
  - Drug hypersensitivity [Unknown]
